FAERS Safety Report 4695663-X (Version None)
Quarter: 2005Q2

REPORT INFORMATION
  Report Type: 
  Country: None (occurrence: None)
  Receive Date: 20050608
  Receipt Date: 20050209
  Transmission Date: 20051028
  Serious: Yes (Disabling)
  Sender: FDA-Public Use
  Company Number: A03200500415

PATIENT
  Age: 71 Year
  Sex: Male
  Weight: 90.7194 kg

DRUGS (2)
  1. ELOXATIN [Suspect]
     Indication: COLON CANCER METASTATIC
     Dosage: INTRAVENOUS NOS
     Route: 042
     Dates: start: 20041101, end: 20041101
  2. OXYGEN [Concomitant]

REACTIONS (5)
  - ABASIA [None]
  - DYSPNOEA [None]
  - HYPOAESTHESIA [None]
  - PERIPHERAL COLDNESS [None]
  - PERIPHERAL SENSORY NEUROPATHY [None]
